FAERS Safety Report 20810939 (Version 7)
Quarter: 2023Q2

REPORT INFORMATION
  Report Type: Spontaneous
  Country: US (occurrence: US)
  Receive Date: 20220510
  Receipt Date: 20230608
  Transmission Date: 20230722
  Serious: No
  Sender: FDA-Public Use
  Company Number: US-PFIZER INC-202200630358

PATIENT
  Age: 88 Year
  Sex: Female

DRUGS (1)
  1. IBRANCE [Suspect]
     Active Substance: PALBOCICLIB
     Indication: Nephrogenic anaemia
     Dosage: 75 MG, CYCLIC TAKE ONCE DAILY TAKEN WITH OR WITHOUT FOOD FOR 7 DAYS FOLLOWED BY 7 DAYS OFF TREATMENT
     Route: 048
     Dates: start: 20230320

REACTIONS (3)
  - Malaise [Unknown]
  - Off label use [Unknown]
  - Expired product administered [Unknown]
